FAERS Safety Report 6390042-1 (Version None)
Quarter: 2009Q4

REPORT INFORMATION
  Report Type: 
  Country: None (occurrence: None)
  Receive Date: 20091001
  Receipt Date: 20090918
  Transmission Date: 20100525
  Serious: Yes (Other)
  Sender: FDA-Public Use
  Company Number: ADE# 09-120

PATIENT
  Age: 55 Year
  Sex: Female

DRUGS (10)
  1. PHENYTOIN SODIUM   EXTENDED CAPSULES [Suspect]
     Dosage: 1 CAP. @AM; 2 CAPS. @HS/ON IT FOR A WHILE
  2. DEXAMETHASONE 0.5MG TAB [Concomitant]
  3. ESTRADIOL [Concomitant]
  4. AMITIZA [Concomitant]
  5. LEXAPRO [Concomitant]
  6. PROCHLORPERAZINE [Concomitant]
  7. FLUCONAZOLE [Concomitant]
  8. DARVOCET [Concomitant]
  9. CHEMO MEDICATIONS [Concomitant]
  10. ALLEGRA [Concomitant]

REACTIONS (1)
  - ANTICONVULSANT DRUG LEVEL DECREASED [None]
